FAERS Safety Report 5816600-8 (Version None)
Quarter: 2008Q3

REPORT INFORMATION
  Report Type: 
  Country: None (occurrence: None)
  Receive Date: 20080717
  Receipt Date: 20080327
  Transmission Date: 20090109
  Serious: Yes (Other)
  Sender: FDA-Public Use
  Company Number: 2008SP006119

PATIENT

DRUGS (4)
  1. INTEGRILIN [Suspect]
     Indication: DRUG USE FOR UNKNOWN INDICATION
     Dates: end: 20080301
  2. ASPIRIN [Concomitant]
  3. PLAVIX [Concomitant]
  4. HEPARIN [Concomitant]

REACTIONS (2)
  - BRADYCARDIA [None]
  - RETROPERITONEAL HAEMORRHAGE [None]
